FAERS Safety Report 8695157 (Version 2)
Quarter: 2013Q4

REPORT INFORMATION
  Report Type: Spontaneous
  Country: US (occurrence: US)
  Receive Date: 20120731
  Receipt Date: 20131107
  Transmission Date: 20140711
  Serious: Yes (Other)
  Sender: FDA-Public Use
  Company Number: US-009507513-1207USA009821

PATIENT
  Sex: Male

DRUGS (7)
  1. ZOCOR [Suspect]
     Dosage: UNK, QD
     Route: 048
  2. LIPITOR [Suspect]
     Dosage: 20 MG, QD
     Route: 048
  3. LIPITOR [Suspect]
     Dosage: 40 MG, QD
     Route: 048
  4. MEVACOR [Suspect]
     Dosage: UNK, QD
  5. METOPROLOL [Concomitant]
     Dosage: 12.5 MG, QD
     Route: 048
  6. CHONDROITIN SULFATE SODIUM (+) GLUCOSAMINE HYDROCHLORIDE [Concomitant]
     Dosage: 500/1200 MG
     Route: 048
  7. OMEPRAZOLE [Concomitant]
     Dosage: 20 MG, QD
     Route: 048

REACTIONS (4)
  - Haemolytic anaemia [Unknown]
  - Autoimmune disorder [Unknown]
  - Hepatic enzyme increased [Unknown]
  - Muscle spasms [Unknown]
